FAERS Safety Report 4579355-3 (Version None)
Quarter: 2005Q1

REPORT INFORMATION
  Report Type: 
  Country: None (occurrence: None)
  Receive Date: 20050209
  Receipt Date: 20050128
  Transmission Date: 20050727
  Serious: Yes (Other)
  Sender: FDA-Public Use
  Company Number: 200413607BCC

PATIENT
  Age: 62 Year
  Sex: Female
  Weight: 76.6579 kg

DRUGS (9)
  1. ALEVE (CAPLET) [Suspect]
     Indication: MYALGIA
     Dosage: PRN ORAL
     Route: 048
     Dates: start: 20040510, end: 20040517
  2. ALEVE (CAPLET) [Suspect]
     Indication: MYALGIA
     Dosage: PRN ORAL
     Route: 048
     Dates: start: 20040521
  3. ALEVE (CAPLET) [Suspect]
     Indication: MYALGIA
     Dosage: PRN ORAL
     Route: 048
     Dates: start: 20040630
  4. DYAZIDE [Concomitant]
  5. PREVACID [Concomitant]
  6. ASPIRIN [Concomitant]
  7. GLUCOSAMINE [Concomitant]
  8. CALCIUM GLUCONATE [Concomitant]
  9. MULTIVITAMIN [Concomitant]

REACTIONS (19)
  - ASTHENIA [None]
  - BACTERIA URINE IDENTIFIED [None]
  - C-REACTIVE PROTEIN INCREASED [None]
  - COUGH [None]
  - FEELING ABNORMAL [None]
  - HEART RATE INCREASED [None]
  - HEART VALVE INSUFFICIENCY [None]
  - HYPERHIDROSIS [None]
  - HYPOTENSION [None]
  - INFECTION [None]
  - PAIN [None]
  - PNEUMONIA [None]
  - PYELONEPHRITIS [None]
  - RED BLOOD CELL SEDIMENTATION RATE INCREASED [None]
  - SEPSIS [None]
  - TREMOR [None]
  - URINARY TRACT INFECTION [None]
  - VOMITING [None]
  - WHITE BLOOD CELL COUNT INCREASED [None]
